FAERS Safety Report 16148084 (Version 1)
Quarter: 2019Q2

REPORT INFORMATION
  Report Type: Spontaneous
  Country: US (occurrence: US)
  Receive Date: 20190402
  Receipt Date: 20190402
  Transmission Date: 20190711
  Serious: No
  Sender: FDA-Public Use
  Company Number: US-BAYER-2019-064968

PATIENT
  Age: 91 Year
  Sex: Male
  Weight: 88 kg

DRUGS (1)
  1. LOTRIMIN ANTIFUNGAL (CLOTRIMAZOLE) [Suspect]
     Active Substance: CLOTRIMAZOLE
     Indication: THERAPEUTIC SKIN CARE TOPICAL
     Dosage: 1 DF
     Route: 048
     Dates: start: 20190326, end: 20190328

REACTIONS (1)
  - Penile burning sensation [Recovered/Resolved]

NARRATIVE: CASE EVENT DATE: 20190327
